FAERS Safety Report 7053531 (Version 10)
Quarter: 2015Q4

REPORT INFORMATION
  Report Type: Report from Study
  Country: JP (occurrence: JP)
  Receive Date: 20090717
  Receipt Date: 20151216
  Transmission Date: 20160305
  Serious: Yes (Death)
  Sender: FDA-Public Use
  Company Number: JP-BAYER-200912396BYL

PATIENT
  Age: 80 Year
  Sex: Female
  Weight: 51.5 kg

DRUGS (9)
  1. NEXAVAR [Suspect]
     Active Substance: SORAFENIB
     Indication: HEPATOCELLULAR CARCINOMA
     Dosage: 800 MG, QD
     Route: 048
     Dates: start: 200906
  2. MAGLAX [Concomitant]
     Active Substance: MAGNESIUM OXIDE
     Dosage: 330 MG (DAILY DOSE), , ORAL
     Route: 048
     Dates: start: 20090706, end: 20090710
  3. LORFENAMIN [Concomitant]
     Active Substance: LOXOPROFEN
     Dosage: 60 MG (DAILY DOSE), , ORAL
     Route: 048
     Dates: start: 20090706, end: 20090710
  4. NEXAVAR [Suspect]
     Active Substance: SORAFENIB
     Indication: HEPATOCELLULAR CARCINOMA
     Dosage: 200 MG, QID
     Route: 048
     Dates: start: 20090707, end: 20090710
  5. PARIET [Concomitant]
     Active Substance: RABEPRAZOLE SODIUM
     Dosage: 10 MG (DAILY DOSE), , ORAL
     Route: 048
     Dates: start: 20090706, end: 20090710
  6. NORVASC [Concomitant]
     Active Substance: AMLODIPINE BESYLATE
     Dosage: 5 MG (DAILY DOSE), , ORAL
     Route: 048
     Dates: start: 20090706, end: 20090710
  7. ALDACTONE A [Concomitant]
     Active Substance: SPIRONOLACTONE
     Dosage: 25 MG (DAILY DOSE), , ORAL
     Route: 048
     Dates: start: 20090706, end: 20090710
  8. AMARYL [Concomitant]
     Active Substance: GLIMEPIRIDE
     Dosage: 1 MG (DAILY DOSE), , ORAL
     Route: 048
     Dates: start: 20090706, end: 20090710
  9. SIVELESTAT [Concomitant]
     Active Substance: SIVELESTAT

REACTIONS (1)
  - Lung disorder [Fatal]

NARRATIVE: CASE EVENT DATE: 20090710
